FAERS Safety Report 20936743 (Version 16)
Quarter: 2023Q2

REPORT INFORMATION
  Report Type: Report from Study
  Country: CN (occurrence: CN)
  Receive Date: 20220609
  Receipt Date: 20230519
  Transmission Date: 20230721
  Serious: Yes (Other)
  Sender: FDA-Public Use
  Company Number: CN-FOSUNKITE-FOSUNKITE-20220032

PATIENT
  Age: 58 Year
  Sex: Male

DRUGS (9)
  1. AXICABTAGENE CILOLEUCEL [Suspect]
     Active Substance: AXICABTAGENE CILOLEUCEL
     Indication: Non-Hodgkin^s lymphoma
     Dosage: 1.5*10^8 CELLS (NUMBER OF CAR-T CELLS)
     Route: 042
     Dates: start: 20211130, end: 20211130
  2. ZANUBRUTINIB [Suspect]
     Active Substance: ZANUBRUTINIB
     Indication: Non-Hodgkin^s lymphoma
     Dosage: UNK; BRIDGING THERAPY
     Route: 048
     Dates: start: 20211126
  3. ZANUBRUTINIB [Suspect]
     Active Substance: ZANUBRUTINIB
     Dosage: UNK DAILY
     Route: 048
     Dates: start: 20211201, end: 20211218
  4. FLUDARABINE [Suspect]
     Active Substance: FLUDARABINE PHOSPHATE
     Indication: Lymphodepletion
     Dosage: 56.4 MG FOR INJECTION
     Route: 042
     Dates: start: 20211125, end: 20211127
  5. CYCLOPHOSPHAMIDE [Suspect]
     Active Substance: CYCLOPHOSPHAMIDE
     Indication: Lymphodepletion
     Dosage: 940 MG FOR INJECTION
     Route: 042
     Dates: start: 20211125, end: 20211127
  6. HUMAN IMMUNOGLOBULIN G [Concomitant]
     Active Substance: HUMAN IMMUNOGLOBULIN G
     Dosage: 10 G, QD
     Dates: start: 20211214
  7. HUMAN IMMUNOGLOBULIN G [Concomitant]
     Active Substance: HUMAN IMMUNOGLOBULIN G
     Dosage: 10 G, BID
     Dates: start: 20211201
  8. HUMAN IMMUNOGLOBULIN G [Concomitant]
     Active Substance: HUMAN IMMUNOGLOBULIN G
     Dosage: 20 G, QD
     Route: 042
     Dates: start: 20220301, end: 20220301
  9. HUMAN IMMUNOGLOBULIN G [Concomitant]
     Active Substance: HUMAN IMMUNOGLOBULIN G
     Dosage: 10 G, BID
     Route: 042
     Dates: start: 20220301, end: 20220301

REACTIONS (20)
  - Hypokalaemia [Recovered/Resolved]
  - Cytokine release syndrome [Recovered/Resolved]
  - White blood cell count decreased [Recovered/Resolved]
  - Neutrophil count decreased [Recovered/Resolved]
  - Platelet count decreased [Recovered/Resolved]
  - Hypophosphataemia [Recovered/Resolved]
  - Aspartate aminotransferase increased [Recovered/Resolved]
  - Gamma-glutamyltransferase increased [Recovering/Resolving]
  - Lymphocyte count decreased [Recovering/Resolving]
  - Anaemia [Recovered/Resolved]
  - Hypoalbuminaemia [Recovered/Resolved]
  - C-reactive protein increased [Not Recovered/Not Resolved]
  - Blood immunoglobulin G decreased [Not Recovered/Not Resolved]
  - Alanine aminotransferase increased [Recovered/Resolved]
  - Cytokine increased [Recovered/Resolved]
  - Hypomagnesaemia [Recovered/Resolved]
  - Asthenia [Recovered/Resolved]
  - Myalgia [Recovered/Resolved]
  - Chest discomfort [Recovered/Resolved]
  - Pyrexia [Recovered/Resolved]

NARRATIVE: CASE EVENT DATE: 20211201
